FAERS Safety Report 24575271 (Version 2)
Quarter: 2024Q4

REPORT INFORMATION
  Report Type: Spontaneous
  Country: FR (occurrence: FR)
  Receive Date: 20241104
  Receipt Date: 20241111
  Transmission Date: 20250115
  Serious: Yes (Death, Hospitalization, Other)
  Sender: SANDOZ
  Company Number: FR-BAYER-2015-454764

PATIENT
  Age: 71 Year
  Sex: Male

DRUGS (69)
  1. ASPIRIN [Suspect]
     Active Substance: ASPIRIN
     Indication: Product used for unknown indication
     Dosage: 200 MILLIGRAM, 1/DAY
     Route: 065
  2. ASPIRIN [Suspect]
     Active Substance: ASPIRIN
     Dosage: 250 MILLIGRAM, 1/DAY
     Route: 065
  3. ASPIRIN DL-LYSINE [Suspect]
     Active Substance: ASPIRIN DL-LYSINE
     Indication: Product used for unknown indication
     Dosage: 20 MILLIGRAM, 1/DAY
     Route: 048
  4. ASPIRIN DL-LYSINE\GLYCINE [Suspect]
     Active Substance: ASPIRIN DL-LYSINE\GLYCINE
     Indication: Product used for unknown indication
     Dosage: UNK
     Route: 065
  5. ALTACE [Suspect]
     Active Substance: RAMIPRIL
     Dosage: 10.000MG QD
     Route: 065
  6. ALTACE [Suspect]
     Active Substance: RAMIPRIL
     Indication: Product used for unknown indication
     Dosage: 5 MG,QD
     Route: 048
  7. ASPIRIN DL-LYSINE [Suspect]
     Active Substance: ASPIRIN DL-LYSINE
     Indication: Product used for unknown indication
     Dosage: 20 MG,QD
     Route: 048
  8. ASPIRIN DL-LYSINE [Suspect]
     Active Substance: ASPIRIN DL-LYSINE
     Dosage: 250 MG, QD
     Route: 048
  9. CELECOXIB [Suspect]
     Active Substance: CELECOXIB
     Indication: Product used for unknown indication
     Dosage: UNK
     Route: 065
  10. CELECOXIB [Suspect]
     Active Substance: CELECOXIB
     Dosage: UNK
     Route: 065
  11. CELECOXIB [Suspect]
     Active Substance: CELECOXIB
     Indication: Product used for unknown indication
     Dosage: UNKNOWN
     Route: 065
  12. CLONAZEPAM [Suspect]
     Active Substance: CLONAZEPAM
     Indication: Product used for unknown indication
     Dosage: 30 MILLIGRAM, 1/DAY
     Route: 048
  13. CLONAZEPAM [Suspect]
     Active Substance: CLONAZEPAM
     Dosage: 4.000MG QD
     Route: 065
  14. PREDNAZOLINE [Suspect]
     Active Substance: PREDNAZOLINE
     Indication: Product used for unknown indication
     Dosage: 1 DF, QD(1 DF, 1X/DAY/1 PUFF, QD)
     Route: 045
  15. PREDNAZOLINE [Suspect]
     Active Substance: PREDNAZOLINE
     Dosage: UNK
     Route: 065
  16. DIACEREIN [Suspect]
     Active Substance: DIACEREIN
     Dosage: 100 MG, BID
     Route: 048
  17. DIACEREIN [Suspect]
     Active Substance: DIACEREIN
     Indication: Product used for unknown indication
     Dosage: 50 MG, 2X/DAY (ONCE EVERY 12HOURS)
     Route: 048
  18. ESOMEPRAZOLE MAGNESIUM [Suspect]
     Active Substance: ESOMEPRAZOLE MAGNESIUM
     Indication: Product used for unknown indication
     Dosage: 20 MG, QD
     Route: 048
  19. FUROSEMIDE [Suspect]
     Active Substance: FUROSEMIDE
     Indication: Product used for unknown indication
     Dosage: 40 MILLIGRAM, 1/DAY
     Route: 048
  20. NITROGLYCERIN [Suspect]
     Active Substance: NITROGLYCERIN
     Indication: Product used for unknown indication
     Dosage: 10.000MG QD
     Route: 062
  21. NITROGLYCERIN [Suspect]
     Active Substance: NITROGLYCERIN
     Dosage: UNK
     Route: 062
  22. ISOPTIN [Suspect]
     Active Substance: VERAPAMIL HYDROCHLORIDE
     Indication: Product used for unknown indication
     Dosage: 240 MG,QD
     Route: 048
  23. LASIX [Suspect]
     Active Substance: FUROSEMIDE
     Indication: Product used for unknown indication
     Dosage: 40 MG,QD
     Route: 048
  24. MIANSERIN HYDROCHLORIDE [Suspect]
     Active Substance: MIANSERIN HYDROCHLORIDE
     Indication: Product used for unknown indication
     Dosage: 60 MG,QD
     Route: 048
  25. POLYETHYLENE GLYCOLS [Suspect]
     Active Substance: POLYETHYLENE GLYCOLS
     Indication: Product used for unknown indication
     Dosage: 2 DOSAGE FORM, 1/DAY
     Route: 065
  26. POLYETHYLENE GLYCOL 3350 [Suspect]
     Active Substance: POLYETHYLENE GLYCOL 3350
     Indication: Product used for unknown indication
     Dosage: 2 DF,QD
     Route: 065
  27. NITROGLYCERIN [Suspect]
     Active Substance: NITROGLYCERIN
     Indication: Product used for unknown indication
     Dosage: 10 MILLIGRAM, 1/DAY
     Route: 065
  28. NITROGLYCERIN [Suspect]
     Active Substance: NITROGLYCERIN
     Dosage: 10 MILLIGRAM, 1/DAY
     Route: 065
  29. OMEPRAZOLE [Suspect]
     Active Substance: OMEPRAZOLE
     Indication: Product used for unknown indication
     Dosage: 20 MG, DAILY
     Route: 048
  30. OMEPRAZOLE [Suspect]
     Active Substance: OMEPRAZOLE
     Dosage: 20 MG, DAILY
     Route: 048
  31. ACETAMINOPHEN [Suspect]
     Active Substance: ACETAMINOPHEN
     Indication: Product used for unknown indication
     Dosage: 100 MG, BID (ONCE EVERY 12HOURS)
     Route: 048
  32. ACETAMINOPHEN [Suspect]
     Active Substance: ACETAMINOPHEN
     Dosage: 1000 MG, 2X/DAY (ONCE EVERY 12HOURS)
     Route: 048
  33. ACETAMINOPHEN [Suspect]
     Active Substance: ACETAMINOPHEN
     Dosage: 100 MILLIGRAM, 2/DAY
     Route: 048
  34. ACETAMINOPHEN [Suspect]
     Active Substance: ACETAMINOPHEN
     Dosage: 200 MG, BID
     Route: 048
  35. PIPAMPERONE [Suspect]
     Active Substance: PIPAMPERONE
     Indication: Product used for unknown indication
     Dosage: 20 MG,QD
     Route: 048
  36. PREDNAZOLINE [Suspect]
     Active Substance: PREDNAZOLINE
     Indication: Product used for unknown indication
     Dosage: 1 DOSAGE FORM, 1/DAY
     Route: 045
  37. PREDNAZOLINE [Suspect]
     Active Substance: PREDNAZOLINE
     Dosage: 1 DOSAGE FORM, 1/DAY
     Route: 045
  38. PREDNAZOLINE [Suspect]
     Active Substance: PREDNAZOLINE
     Dosage: 1 DOSAGE FORM, 1/DAY
     Route: 045
  39. PREDNAZOLINE [Suspect]
     Active Substance: PREDNAZOLINE
     Dosage: 1 DOSAGE FORM, 1/DAY
     Route: 045
  40. PREDNAZOLINE [Suspect]
     Active Substance: PREDNAZOLINE
     Dosage: UNK DOSAGE FORM, 1/DAY
     Route: 045
  41. PREDNAZOLINE [Suspect]
     Active Substance: PREDNAZOLINE
     Dosage: UNKNOWN
     Route: 065
  42. PROPRANOLOL [Suspect]
     Active Substance: PROPRANOLOL HYDROCHLORIDE
     Dosage: 100.000MG BID
     Route: 048
  43. PROPRANOLOL [Suspect]
     Active Substance: PROPRANOLOL HYDROCHLORIDE
     Indication: Product used for unknown indication
     Dosage: 20 MG,QD
     Route: 048
  44. RAMIPRIL [Suspect]
     Active Substance: RAMIPRIL
     Indication: Product used for unknown indication
     Dosage: 5 MILLIGRAM, 1/DAY
     Route: 048
  45. RIVOTRIL [Suspect]
     Active Substance: CLONAZEPAM
     Indication: Product used for unknown indication
     Dosage: 4 MG,QD
     Route: 048
  46. SIMVASTATIN [Suspect]
     Active Substance: SIMVASTATIN
     Indication: Product used for unknown indication
     Dosage: 20.000MG QD
     Route: 065
  47. ALBUTEROL SULFATE [Suspect]
     Active Substance: ALBUTEROL SULFATE
     Dosage: 1 DF,BID
     Route: 065
  48. ALBUTEROL SULFATE [Suspect]
     Active Substance: ALBUTEROL SULFATE
     Indication: Product used for unknown indication
     Dosage: 2.000DF QD
     Route: 065
  49. ALBUTEROL SULFATE [Suspect]
     Active Substance: ALBUTEROL SULFATE
     Dosage: UNK
     Route: 065
  50. SALMETEROL XINAFOATE [Suspect]
     Active Substance: SALMETEROL XINAFOATE
     Indication: Product used for unknown indication
     Dosage: 1 DOSAGE FORM, 2/DAY
     Route: 045
  51. SALMETEROL XINAFOATE [Suspect]
     Active Substance: SALMETEROL XINAFOATE
     Dosage: 1 DOSAGE FORM, EVERY 12 HRS
     Route: 045
  52. SEREVENT DISKUS [Suspect]
     Active Substance: SALMETEROL XINAFOATE
     Indication: Product used for unknown indication
     Dosage: 1 DF,BID (1 PUFF) (ONCE EVERY 12HOURS)
     Route: 045
  53. SEREVENT DISKUS [Suspect]
     Active Substance: SALMETEROL XINAFOATE
     Dosage: 2 DF, BID
     Route: 065
  54. TRIHEXYPHENIDYL HYDROCHLORIDE [Suspect]
     Active Substance: TRIHEXYPHENIDYL HYDROCHLORIDE
     Indication: Product used for unknown indication
     Dosage: 1 MG, QD
     Route: 048
  55. NITROGLYCERIN [Suspect]
     Active Substance: NITROGLYCERIN
     Indication: Product used for unknown indication
     Dosage: 10 MG,QD
     Route: 065
  56. NITROGLYCERIN [Suspect]
     Active Substance: NITROGLYCERIN
     Dosage: 10 MG,QD
     Route: 065
  57. NITROGLYCERIN [Suspect]
     Active Substance: NITROGLYCERIN
     Dosage: UNKNOWN
     Route: 065
  58. CLOBAZAM [Suspect]
     Active Substance: CLOBAZAM
     Dosage: 10.000MG QD
     Route: 065
  59. CLOBAZAM [Suspect]
     Active Substance: CLOBAZAM
     Dosage: 10.000MG TID
     Route: 065
  60. CLOBAZAM [Suspect]
     Active Substance: CLOBAZAM
     Indication: Product used for unknown indication
     Dosage: 20 MG, QD
     Route: 048
  61. CLOBAZAM [Suspect]
     Active Substance: CLOBAZAM
     Dosage: 30.000MG TID
     Route: 065
  62. CLOBAZAM [Suspect]
     Active Substance: CLOBAZAM
     Dosage: 4.000MG QD
     Route: 065
  63. CLOBAZAM [Suspect]
     Active Substance: CLOBAZAM
     Dosage: 90.000MG QD
     Route: 065
  64. VERAPAMIL HYDROCHLORIDE [Suspect]
     Active Substance: VERAPAMIL HYDROCHLORIDE
     Indication: Product used for unknown indication
     Dosage: 240.000MG QD
     Route: 065
  65. ALBUTEROL [Suspect]
     Active Substance: ALBUTEROL
     Indication: Product used for unknown indication
     Dosage: 2 DOSAGE FORM, 1/DAY
     Route: 045
  66. ALBUTEROL [Suspect]
     Active Substance: ALBUTEROL
     Dosage: UNK
     Route: 045
  67. ZOPICLONE [Suspect]
     Active Substance: ZOPICLONE
     Indication: Product used for unknown indication
     Dosage: 15 MG,QD
     Route: 048
  68. ZOCOR [Suspect]
     Active Substance: SIMVASTATIN
     Indication: Product used for unknown indication
     Dosage: 20 MG,QD
     Route: 048
  69. OXYGEN [Concomitant]
     Active Substance: OXYGEN
     Indication: Product used for unknown indication
     Dosage: UNKNOWN
     Route: 065

REACTIONS (13)
  - Cerebral artery thrombosis [Fatal]
  - Disease recurrence [Fatal]
  - Facial paralysis [Fatal]
  - Ischaemic stroke [Fatal]
  - Nausea [Fatal]
  - Respiratory distress [Fatal]
  - Respiratory failure [Fatal]
  - Areflexia [Fatal]
  - Brain scan abnormal [Fatal]
  - Hemiplegia [Fatal]
  - Cerebrovascular accident [Fatal]
  - Off label use [Fatal]
  - Product use issue [Fatal]
